FAERS Safety Report 9050519 (Version 1)
Quarter: 2013Q1

REPORT INFORMATION
  Report Type: Spontaneous
  Country: FR (occurrence: FR)
  Receive Date: 20130205
  Receipt Date: 20130205
  Transmission Date: 20140127
  Serious: Yes (Hospitalization)
  Sender: FDA-Public Use
  Company Number: PHHY2013FR009537

PATIENT
  Age: 58 None
  Sex: Female

DRUGS (4)
  1. CARDIOXANE [Suspect]
     Indication: BREAST CANCER
     Dosage: 1350 MG
     Route: 042
     Dates: start: 20130116, end: 20130116
  2. FLUOROURACIL [Suspect]
     Indication: BREAST CANCER
     Dosage: 770 MG, ONCE
     Route: 042
     Dates: start: 20130116, end: 20130116
  3. ENDOXAN [Suspect]
     Indication: BREAST CANCER
     Dosage: 650 MG, ONCE/SINGLE
     Route: 042
     Dates: start: 20130116, end: 20130116
  4. EPIRUBICIN [Suspect]
     Indication: BREAST CANCER

REACTIONS (3)
  - Burning sensation [Recovered/Resolved]
  - Injection site pain [Recovered/Resolved]
  - Malaise [Recovered/Resolved]
